FAERS Safety Report 7705637-X (Version None)
Quarter: 2011Q3

REPORT INFORMATION
  Report Type: 
  Country: None (occurrence: None)
  Receive Date: 20110824
  Receipt Date: 20101206
  Transmission Date: 20111222
  Serious: No
  Sender: FDA-Public Use
  Company Number: US-BAYER-2010-008780

PATIENT
  Sex: Female

DRUGS (2)
  1. SIMAVASTATIN [Concomitant]
  2. MIRENA [Suspect]
     Indication: MENORRHAGIA
     Dosage: 20 ?G/D, CONT
     Route: 015
     Dates: start: 20100401, end: 20100901

REACTIONS (2)
  - MENORRHAGIA [None]
  - DEVICE EXPULSION [None]
